FAERS Safety Report 6714000-X (Version None)
Quarter: 2010Q2

REPORT INFORMATION
  Report Type: 
  Country: None (occurrence: None)
  Receive Date: 20100506
  Receipt Date: 20100426
  Transmission Date: 20101027
  Serious: Yes (Hospitalization)
  Sender: FDA-Public Use
  Company Number: US-ALEXION-A201000453

PATIENT
  Sex: Female

DRUGS (7)
  1. SOLIRIS [Suspect]
     Indication: PAROXYSMAL NOCTURNAL HAEMOGLOBINURIA
     Route: 042
  2. SOLIRIS [Suspect]
     Dosage: 900 MG, UNK
     Route: 042
  3. ALPRAZOLAM [Concomitant]
     Indication: ANXIETY
     Dosage: 1 MG, PRN
     Route: 048
  4. AMLODIPINE [Concomitant]
     Dosage: 10 MG, QD (QAM)
     Route: 048
  5. CARAFATE [Concomitant]
     Dosage: 1 G, BID
     Route: 048
  6. KEFLEX                             /00145501/ [Concomitant]
     Dosage: 500 MG, QD
     Route: 048
  7. TRAMADOL [Concomitant]
     Dosage: 50 MG, TID
     Route: 048

REACTIONS (4)
  - ABSCESS [None]
  - FATIGUE [None]
  - GASTRIC ULCER [None]
  - HAEMOGLOBIN DECREASED [None]
